FAERS Safety Report 8387594-9 (Version None)
Quarter: 2012Q2

REPORT INFORMATION
  Report Type: 
  Country: None (occurrence: None)
  Receive Date: 20120525
  Receipt Date: 20120510
  Transmission Date: 20120825
  Serious: Yes (Other)
  Sender: FDA-Public Use
  Company Number: US-ENDO PHARMACEUTICALS INC.-OPER20120620

PATIENT
  Age: 62 Year
  Sex: Male

DRUGS (2)
  1. OPANA [Concomitant]
     Indication: BREAKTHROUGH PAIN
     Dosage: 10 MG
     Route: 048
  2. OPANA ER [Suspect]
     Indication: BACK PAIN
     Route: 048

REACTIONS (1)
  - WRONG TECHNIQUE IN DRUG USAGE PROCESS [None]
